FAERS Safety Report 23359056 (Version 1)
Quarter: 2024Q1

REPORT INFORMATION
  Report Type: Spontaneous
  Country: CN (occurrence: CN)
  Receive Date: 20240102
  Receipt Date: 20240102
  Transmission Date: 20240410
  Serious: Yes (Other)
  Sender: FDA-Public Use
  Company Number: CN-009507513-2310CHN000320

PATIENT
  Age: 73 Year
  Sex: Female
  Weight: 40 kg

DRUGS (2)
  1. PEMBROLIZUMAB [Suspect]
     Active Substance: PEMBROLIZUMAB
     Indication: Non-small cell lung cancer
     Dosage: 200 MG Q3W
     Route: 041
     Dates: start: 20230810, end: 20230810
  2. RIVAROXABAN [Concomitant]
     Active Substance: RIVAROXABAN
     Indication: Prophylaxis
     Dosage: 10 MG, QD
     Route: 048
     Dates: start: 20230901, end: 20230927

REACTIONS (11)
  - Arrhythmia [Recovering/Resolving]
  - Sinus node dysfunction [Unknown]
  - Mitral valve incompetence [Unknown]
  - Tricuspid valve incompetence [Unknown]
  - Aortic valve incompetence [Unknown]
  - Pericardial effusion [Unknown]
  - N-terminal prohormone brain natriuretic peptide increased [Not Recovered/Not Resolved]
  - Ventricular compliance decreased [Unknown]
  - Decreased appetite [Recovered/Resolved]
  - Hyponatraemia [Not Recovered/Not Resolved]
  - Anaemia [Not Recovered/Not Resolved]

NARRATIVE: CASE EVENT DATE: 20230830
